FAERS Safety Report 7952460-7 (Version None)
Quarter: 2011Q4

REPORT INFORMATION
  Report Type: 
  Country: None (occurrence: None)
  Receive Date: 20111201
  Receipt Date: 20111117
  Transmission Date: 20120403
  Serious: Yes (Other)
  Sender: FDA-Public Use
  Company Number: US-CELGENEUS-163-21880-11112818

PATIENT
  Age: 53 Year
  Sex: Male

DRUGS (25)
  1. AMOXICILLIN [Concomitant]
     Indication: OSTEOMYELITIS
     Route: 065
  2. CARFILZOMIB [Concomitant]
     Route: 065
     Dates: start: 20080101
  3. CYCLOPHOSPHAMIDE [Concomitant]
     Route: 065
     Dates: end: 20090501
  4. DOXORUBICIN HCL [Concomitant]
     Route: 065
     Dates: end: 20070301
  5. VINCRISTINE [Concomitant]
     Route: 065
     Dates: end: 20070301
  6. DEXAMETHASONE [Concomitant]
     Route: 065
     Dates: start: 20080101
  7. PIPERACILLIN AND TAZOBACTAM [Concomitant]
     Route: 065
  8. MEROPENEM [Concomitant]
     Indication: OSTEOMYELITIS
     Route: 065
  9. REVLIMID [Suspect]
     Route: 048
     Dates: start: 20080101
  10. THALIDOMIDE [Concomitant]
     Route: 065
     Dates: end: 20090501
  11. CISPLATIN [Concomitant]
     Route: 065
     Dates: end: 20090501
  12. DEXAMETHASONE [Concomitant]
     Route: 065
     Dates: end: 20070301
  13. VANCOMYCIN [Concomitant]
     Route: 065
  14. DROTRECOGIN ALFA [Concomitant]
     Route: 065
  15. CLINDAMYCIN [Concomitant]
     Indication: ANTI-INFECTIVE THERAPY
     Route: 065
  16. LINEZOLID [Concomitant]
     Route: 065
  17. ETOPOSIDE [Concomitant]
     Route: 065
     Dates: end: 20090501
  18. LEVOFLOXACIN [Concomitant]
     Route: 065
  19. LINEZOLID [Concomitant]
     Indication: OSTEOMYELITIS
     Route: 048
  20. LINEZOLID [Concomitant]
     Route: 065
  21. REVLIMID [Suspect]
     Indication: MULTIPLE MYELOMA
     Route: 048
     Dates: start: 20060101, end: 20070101
  22. PENICILLIN G [Concomitant]
     Indication: ANTI-INFECTIVE THERAPY
     Route: 065
  23. VORINOSTAT [Concomitant]
     Route: 065
  24. BORTEZOMIB [Concomitant]
     Route: 065
     Dates: end: 20090501
  25. BIAXIN [Concomitant]
     Route: 065

REACTIONS (3)
  - CELLULITIS [None]
  - SOFT TISSUE NECROSIS [None]
  - RENAL FAILURE [None]
